FAERS Safety Report 11195325 (Version 1)
Quarter: 2015Q2

REPORT INFORMATION
  Report Type: Report from Study
  Country: US (occurrence: None)
  Receive Date: 20150603
  Receipt Date: 20150603
  Transmission Date: 20150821
  Serious: No
  Sender: FDA-Public Use
  Company Number: 2014TASUS000637

PATIENT
  Age: 71 Year
  Sex: Female
  Weight: 79.4 kg

DRUGS (5)
  1. PRAMIPEXOLE [Concomitant]
     Active Substance: PRAMIPEXOLE
  2. LEVOTHYROXINE (LEVOTHYROXINE SODIUM) [Concomitant]
  3. METOPROLOL (METOPROLOL TARTRATE) [Concomitant]
     Active Substance: METOPROLOL TARTRATE
  4. HETLIOZ [Suspect]
     Active Substance: TASIMELTEON
     Indication: CIRCADIAN RHYTHM SLEEP DISORDER
     Route: 048
     Dates: start: 20141203, end: 201501
  5. BUPROPION (BUPROPION HYDROCHLORIDE) [Concomitant]

REACTIONS (2)
  - Drug ineffective [None]
  - Lower urinary tract symptoms [None]

NARRATIVE: CASE EVENT DATE: 20141203
